FAERS Safety Report 4453604-4 (Version None)
Quarter: 2004Q3

REPORT INFORMATION
  Report Type: 
  Country: None (occurrence: None)
  Receive Date: 20040920
  Receipt Date: 20040907
  Transmission Date: 20050211
  Serious: Yes (Other)
  Sender: FDA-Public Use
  Company Number: US-BRISTOL-MYERS SQUIBB COMPANY-12694782

PATIENT
  Age: 24 Year
  Sex: Female

DRUGS (1)
  1. CEPHALEXIN [Suspect]
     Indication: PHARYNGITIS

REACTIONS (6)
  - COUGH [None]
  - DIARRHOEA [None]
  - HAEMOPTYSIS [None]
  - NEPHROPATHY TOXIC [None]
  - PRURITUS [None]
  - RENAL TUBULAR NECROSIS [None]
